FAERS Safety Report 24153794 (Version 1)
Quarter: 2024Q3

REPORT INFORMATION
  Report Type: Spontaneous
  Country: US (occurrence: US)
  Receive Date: 20240730
  Receipt Date: 20240730
  Transmission Date: 20241017
  Serious: No
  Sender: MYLAN
  Company Number: US-MYLANLABS-2024M1068217

PATIENT
  Sex: Male
  Weight: 68.04 kg

DRUGS (1)
  1. BREYNA [Suspect]
     Active Substance: BUDESONIDE\FORMOTEROL FUMARATE
     Indication: Asthma
     Dosage: 160/4.5 MICROGRAM, BID (ONE PUFF TWICE A DAY)
     Route: 065

REACTIONS (3)
  - Off label use [Unknown]
  - Device delivery system issue [Unknown]
  - Product quality issue [Unknown]
